FAERS Safety Report 5481880-8 (Version None)
Quarter: 2007Q4

REPORT INFORMATION
  Report Type: 
  Country: None (occurrence: None)
  Receive Date: 20071005
  Receipt Date: 20070815
  Transmission Date: 20080405
  Serious: Yes (Other)
  Sender: FDA-Public Use
  Company Number: TPA2007A02022

PATIENT
  Age: 45 Year
  Sex: Male

DRUGS (3)
  1. ACTOS [Suspect]
     Indication: TYPE 2 DIABETES MELLITUS
     Dosage: PER ORAL
     Route: 048
  2. METFORMIN HCL [Concomitant]
  3. MULTIPLE MEDICATIONS (ANTI-DIABETICS) [Concomitant]

REACTIONS (1)
  - RENAL FAILURE [None]
